FAERS Safety Report 7668048-1 (Version None)
Quarter: 2011Q3

REPORT INFORMATION
  Report Type: 
  Country: None (occurrence: None)
  Receive Date: 20110808
  Receipt Date: 20110804
  Transmission Date: 20111222
  Serious: No
  Sender: FDA-Public Use
  Company Number: US-PFIZER INC-2011178918

PATIENT
  Sex: Female
  Weight: 79.37 kg

DRUGS (8)
  1. NEXIUM [Concomitant]
     Dosage: UNK
  2. ACETYLSALICYLIC ACID [Concomitant]
     Dosage: UNK
  3. LYRICA [Suspect]
     Indication: DIABETIC NEUROPATHY
     Dosage: 50 MG, SINGLE
     Route: 048
     Dates: start: 20110101, end: 20110101
  4. LIDOCAINE [Concomitant]
     Dosage: UNK
  5. METFORMIN [Concomitant]
     Dosage: UNK
  6. METOCLOPRAMIDE [Concomitant]
     Dosage: UNK
  7. PRIMIDONE [Concomitant]
     Dosage: UNK
  8. AMLODIPINE [Concomitant]
     Dosage: UNK

REACTIONS (3)
  - SOMNOLENCE [None]
  - EYE DISORDER [None]
  - VOMITING [None]
